FAERS Safety Report 13512777 (Version 1)
Quarter: 2017Q2

REPORT INFORMATION
  Report Type: Spontaneous
  Country: US (occurrence: US)
  Receive Date: 20170504
  Receipt Date: 20170504
  Transmission Date: 20170830
  Serious: Yes (Hospitalization)
  Sender: FDA-Public Use
  Company Number: None

PATIENT
  Age: 87 Year
  Sex: Female
  Weight: 89.5 kg

DRUGS (9)
  1. ANCICLOVIR [Concomitant]
  2. AMIODARONE [Concomitant]
     Active Substance: AMIODARONE
  3. SYNTHROID [Concomitant]
     Active Substance: LEVOTHYROXINE SODIUM
  4. PRED FORTE [Concomitant]
     Active Substance: PREDNISOLONE ACETATE
  5. PRIVIGEN [Suspect]
     Active Substance: HUMAN IMMUNOGLOBULIN G
     Indication: THROMBOCYTOPENIA
     Route: 042
  6. ZOCOR [Concomitant]
     Active Substance: SIMVASTATIN
  7. ALDACTONE [Concomitant]
     Active Substance: SPIRONOLACTONE
  8. DIOVAN [Concomitant]
     Active Substance: VALSARTAN
  9. TOPROL XL [Concomitant]
     Active Substance: METOPROLOL SUCCINATE

REACTIONS (1)
  - Non-cardiac chest pain [None]

NARRATIVE: CASE EVENT DATE: 20161103
